FAERS Safety Report 9830481 (Version 2)
Quarter: 2014Q1

REPORT INFORMATION
  Report Type: Report from Study
  Country: JP (occurrence: JP)
  Receive Date: 20140120
  Receipt Date: 20140210
  Transmission Date: 20141002
  Serious: Yes (Disabling)
  Sender: FDA-Public Use
  Company Number: JP-GLAXOSMITHKLINE-B0861683A

PATIENT
  Age: 5 Decade
  Sex: Female
  Weight: 82 kg

DRUGS (4)
  1. VOTRIENT 200MG [Suspect]
     Indication: ROUND CELL LIPOSARCOMA
     Dosage: 800MG PER DAY
     Route: 048
     Dates: start: 20130116, end: 20130410
  2. OXYCONTIN [Concomitant]
     Indication: ROUND CELL LIPOSARCOMA
     Route: 048
  3. OXINORM [Concomitant]
     Indication: ROUND CELL LIPOSARCOMA
     Route: 048
  4. ARGAMATE [Concomitant]
     Indication: HYPERKALAEMIA
     Route: 048

REACTIONS (2)
  - Impaired healing [Not Recovered/Not Resolved]
  - Vomiting [Recovering/Resolving]
